FAERS Safety Report 6970978-0 (Version None)
Quarter: 2010Q3

REPORT INFORMATION
  Report Type: 
  Country: None (occurrence: None)
  Receive Date: 20100824
  Receipt Date: 20100215
  Transmission Date: 20110219
  Serious: Yes (Other)
  Sender: FDA-Public Use
  Company Number: 2010020718

PATIENT
  Age: 57 Year
  Sex: Female
  Weight: 59 kg

DRUGS (3)
  1. NORVASC [Suspect]
     Indication: HYPERTENSION
     Dosage: 5 MG, DAILY, ORAL
     Route: 048
     Dates: start: 20100209
  2. ESTRADIOL [Concomitant]
  3. DARIFENACIN [Concomitant]

REACTIONS (4)
  - ABDOMINAL PAIN [None]
  - ANGINA PECTORIS [None]
  - DRUG ADMINISTRATION ERROR [None]
  - HYPERSENSITIVITY [None]
